FAERS Safety Report 9723228 (Version 2)
Quarter: 2013Q4

REPORT INFORMATION
  Report Type: Spontaneous
  Country: US (occurrence: US)
  Receive Date: 20131202
  Receipt Date: 20131202
  Transmission Date: 20140711
  Serious: Yes (Other)
  Sender: FDA-Public Use
  Company Number: US-GILEAD-2008-0016273

PATIENT
  Age: 49 Year
  Sex: Male
  Weight: 54.43 kg

DRUGS (9)
  1. TRUVADA [Suspect]
     Indication: HIV INFECTION
     Dates: start: 200604, end: 200804
  2. DEPAKOTE [Concomitant]
  3. LITHIUM [Concomitant]
  4. KALETRA [Concomitant]
  5. SINEMET [Concomitant]
  6. ABILIFY [Concomitant]
  7. CYMBALTA [Concomitant]
  8. ACYCLOVIR [Concomitant]
  9. TRAZODONE [Concomitant]

REACTIONS (1)
  - Fanconi syndrome acquired [Unknown]
